FAERS Safety Report 20219674 (Version 2)
Quarter: 2021Q4

REPORT INFORMATION
  Report Type: Spontaneous
  Country: FI (occurrence: FI)
  Receive Date: 20211222
  Receipt Date: 20211229
  Transmission Date: 20220303
  Serious: Yes (Hospitalization, Other)
  Sender: FDA-Public Use
  Company Number: FI-ALLERGAN-2143322US

PATIENT
  Sex: Female

DRUGS (1)
  1. BOTULINUM TOXIN TYPE A [Suspect]
     Active Substance: BOTULINUM TOXIN TYPE A
     Indication: Muscle tightness
     Dosage: UNK UNK, Q3MONTHS
     Route: 030

REACTIONS (5)
  - Jaw disorder [Unknown]
  - Cartilage development disorder [Unknown]
  - Joint destruction [Unknown]
  - Facial paralysis [Unknown]
  - Off label use [Unknown]
